FAERS Safety Report 18537011 (Version 2)
Quarter: 2020Q4

REPORT INFORMATION
  Report Type: Spontaneous
  Country: JP (occurrence: JP)
  Receive Date: 20201124
  Receipt Date: 20201209
  Transmission Date: 20210114
  Serious: Yes (Hospitalization, Other)
  Sender: FDA-Public Use
  Company Number: JP-009507513-2011JPN002763J

PATIENT
  Age: 78 Year
  Sex: Male

DRUGS (2)
  1. SOLU-MEDROL [Concomitant]
     Active Substance: METHYLPREDNISOLONE SODIUM SUCCINATE
     Dosage: UNK
     Route: 041
  2. KEYTRUDA [Suspect]
     Active Substance: PEMBROLIZUMAB
     Indication: LUNG ADENOCARCINOMA
     Dosage: 200 MILLIGRAM, Q3W
     Route: 041
     Dates: start: 20191010, end: 20201119

REACTIONS (1)
  - Duodenal ulcer [Recovering/Resolving]

NARRATIVE: CASE EVENT DATE: 20201119
